FAERS Safety Report 25793038 (Version 6)
Quarter: 2025Q4

REPORT INFORMATION
  Report Type: Spontaneous
  Country: CA (occurrence: CA)
  Receive Date: 20250911
  Receipt Date: 20251124
  Transmission Date: 20260119
  Serious: Yes (Hospitalization, Other)
  Sender: PFIZER
  Company Number: CA-PFIZER INC-202500037971

PATIENT
  Age: 75 Year
  Sex: Female
  Weight: 86 kg

DRUGS (5)
  1. IXIFI [Suspect]
     Active Substance: INFLIXIMAB-QBTX
     Indication: Crohn^s disease
     Dosage: 10 MG/KG, EVERY 6 WEEKS, ROUNDED TO THE NEAREST VIAL
     Route: 042
     Dates: start: 20250506
  2. IXIFI [Suspect]
     Active Substance: INFLIXIMAB-QBTX
     Dosage: 10 MG/KG, EVERY 6 WEEKS, ROUNDED TO THE NEAREST VIAL
     Route: 042
     Dates: start: 20250617
  3. IXIFI [Suspect]
     Active Substance: INFLIXIMAB-QBTX
     Dosage: 900 MG, EVERY 6 WEEKS (10 MG/KG)
     Route: 042
     Dates: start: 20250729
  4. IXIFI [Suspect]
     Active Substance: INFLIXIMAB-QBTX
     Dosage: 900 MG, EVERY 6 WEEKS
     Route: 042
     Dates: start: 20250909
  5. IXIFI [Suspect]
     Active Substance: INFLIXIMAB-QBTX
     Dosage: 860MG AFTER 10 WEEKS AND 1 DAY(860 MG,EVERY 6 WEEKS)
     Route: 042
     Dates: start: 20251119

REACTIONS (9)
  - Purpura senile [Not Recovered/Not Resolved]
  - Myocardial infarction [Unknown]
  - Vitamin C deficiency [Unknown]
  - Blood pressure systolic increased [Not Recovered/Not Resolved]
  - Condition aggravated [Not Recovered/Not Resolved]
  - Cystitis [Unknown]
  - Off label use [Unknown]
  - Off label use [Unknown]
  - Intentional product use issue [Unknown]

NARRATIVE: CASE EVENT DATE: 20250101
